FAERS Safety Report 17875874 (Version 1)
Quarter: 2020Q2

REPORT INFORMATION
  Report Type: Spontaneous
  Country: DE (occurrence: DE)
  Receive Date: 20200609
  Receipt Date: 20200609
  Transmission Date: 20200714
  Serious: Yes (Death, Hospitalization, Other)
  Sender: FDA-Public Use
  Company Number: DE-IPCA LABORATORIES LIMITED-IPC-2020-DE-001795

PATIENT

DRUGS (1)
  1. METFORMIN [Suspect]
     Active Substance: METFORMIN HYDROCHLORIDE
     Indication: TYPE 2 DIABETES MELLITUS
     Dosage: UNK
     Route: 065

REACTIONS (10)
  - Hypothermia [Fatal]
  - Hypotension [Fatal]
  - Intestinal ischaemia [Fatal]
  - Somnolence [Fatal]
  - Septic shock [Fatal]
  - Hypoglycaemia [Fatal]
  - Lactic acidosis [Fatal]
  - Renal failure [Fatal]
  - Shock haemorrhagic [Fatal]
  - Cardiogenic shock [Fatal]
